FAERS Safety Report 6719052-9 (Version None)
Quarter: 2010Q2

REPORT INFORMATION
  Report Type: 
  Country: None (occurrence: None)
  Receive Date: 20100510
  Receipt Date: 20100510
  Transmission Date: 20101027
  Serious: Yes (Other)
  Sender: FDA-Public Use
  Company Number: None

PATIENT
  Age: 55 Year
  Sex: Female
  Weight: 78.0187 kg

DRUGS (1)
  1. METOPROLOL TARTRATE [Suspect]
     Indication: ANGIOPATHY
     Dosage: 50 MG
     Dates: start: 20100312, end: 20100429

REACTIONS (2)
  - PRODUCT SUBSTITUTION ISSUE [None]
  - SYNCOPE [None]
